FAERS Safety Report 15123895 (Version 6)
Quarter: 2019Q1

REPORT INFORMATION
  Report Type: Spontaneous
  Country: US (occurrence: US)
  Receive Date: 20180710
  Receipt Date: 20190315
  Transmission Date: 20190417
  Serious: Yes (Life-Threatening, Hospitalization, Other)
  Sender: FDA-Public Use
  Company Number: US-BIOGEN-2018BI00604910

PATIENT
  Age: 42 Year
  Sex: Male

DRUGS (5)
  1. TYSABRI [Suspect]
     Active Substance: NATALIZUMAB
     Route: 050
     Dates: start: 20120605, end: 20131021
  2. TYSABRI [Suspect]
     Active Substance: NATALIZUMAB
     Route: 042
  3. TYSABRI [Suspect]
     Active Substance: NATALIZUMAB
     Route: 050
     Dates: start: 20090911, end: 20110623
  4. TYSABRI [Suspect]
     Active Substance: NATALIZUMAB
     Indication: MULTIPLE SCLEROSIS
     Route: 050
     Dates: start: 20090901
  5. TYSABRI [Suspect]
     Active Substance: NATALIZUMAB
     Route: 050
     Dates: start: 20150605, end: 20180601

REACTIONS (7)
  - Blindness [Unknown]
  - Visual impairment [Not Recovered/Not Resolved]
  - Mental impairment [Unknown]
  - Meningitis viral [Not Recovered/Not Resolved]
  - Cerebrovascular accident [Unknown]
  - Motor dysfunction [Not Recovered/Not Resolved]
  - Paraplegia [Unknown]

NARRATIVE: CASE EVENT DATE: 20180627
